FAERS Safety Report 6998212-6 (Version None)
Quarter: 2010Q3

REPORT INFORMATION
  Report Type: 
  Country: None (occurrence: None)
  Receive Date: 20100920
  Receipt Date: 20100909
  Transmission Date: 20110219
  Serious: Yes (Hospitalization)
  Sender: FDA-Public Use
  Company Number: US-JNJFOC-20100903597

PATIENT
  Sex: Female

DRUGS (6)
  1. STELARA [Suspect]
     Indication: DERMATITIS ATOPIC
     Route: 058
  2. STELARA [Suspect]
     Indication: PSORIASIS
     Route: 058
  3. ALBUTEROL [Concomitant]
     Indication: ASTHMA
  4. ADVAIR DISKUS 100/50 [Concomitant]
     Indication: ASTHMA
  5. VALTREX [Concomitant]
  6. MOTRIN [Concomitant]

REACTIONS (1)
  - MYOCARDIAL INFARCTION [None]
